FAERS Safety Report 8890278 (Version 2)
Quarter: 2012Q4

REPORT INFORMATION
  Report Type: 
  Country: ES (occurrence: ES)
  Receive Date: 20121107
  Receipt Date: 20121127
  Transmission Date: 20130627
  Serious: Yes (Other)
  Sender: FDA-Public Use
  Company Number: ES-ELI_LILLY_AND_COMPANY-ES201210007942

PATIENT
  Age: 78 Year
  Sex: Female

DRUGS (4)
  1. CYMBALTA [Suspect]
     Indication: DEPRESSION
     Dosage: 60 mg, bid
     Route: 048
     Dates: start: 2010
  2. ABILIFY [Concomitant]
     Indication: DEPRESSION
     Dosage: 15 mg, qd
     Route: 048
  3. ELONTRIL [Concomitant]
     Indication: DEPRESSION
     Dosage: 300 mg, qd
     Route: 048
     Dates: start: 2010, end: 20120822
  4. SEROQUEL [Concomitant]
     Indication: DEPRESSION
     Dosage: 50 mg, qd
     Route: 048

REACTIONS (4)
  - Grand mal convulsion [Recovered/Resolved]
  - Loss of consciousness [Unknown]
  - Renal failure chronic [Not Recovered/Not Resolved]
  - Drug interaction [Unknown]
